FAERS Safety Report 17145281 (Version 1)
Quarter: 2019Q4

REPORT INFORMATION
  Report Type: Report from Study
  Country: GB (occurrence: GB)
  Receive Date: 20191212
  Receipt Date: 20191212
  Transmission Date: 20200122
  Serious: Yes (Other)
  Sender: FDA-Public Use
  Company Number: NVSC2019GB065448

PATIENT
  Age: 34 Year
  Sex: Female

DRUGS (1)
  1. SANDOSTATIN LAR DEPOT [Suspect]
     Active Substance: OCTREOTIDE ACETATE
     Indication: NEUROENDOCRINE TUMOUR
     Dosage: 30 MG, Q3W
     Route: 030
     Dates: start: 20170901

REACTIONS (5)
  - Alopecia [Recovering/Resolving]
  - Inappropriate schedule of product administration [Unknown]
  - Lower respiratory tract infection [Unknown]
  - Influenza like illness [Unknown]
  - Musculoskeletal chest pain [Unknown]
